FAERS Safety Report 16594908 (Version 2)
Quarter: 2019Q3

REPORT INFORMATION
  Report Type: Report from Study
  Country: BR (occurrence: BR)
  Receive Date: 20190718
  Receipt Date: 20190829
  Transmission Date: 20191004
  Serious: Yes (Other)
  Sender: FDA-Public Use
  Company Number: BR-JNJFOC-20190708858

PATIENT
  Age: 6 Decade
  Sex: Male
  Weight: 90 kg

DRUGS (5)
  1. RISPERIDONE. [Concomitant]
     Active Substance: RISPERIDONE
     Indication: SCHIZOPHRENIA
     Route: 065
  2. INVEGA SUSTENNA [Suspect]
     Active Substance: PALIPERIDONE PALMITATE
     Indication: SCHIZOPHRENIA
     Route: 030
     Dates: start: 20190128, end: 2019
  3. NEOZINE                            /00038601/ [Concomitant]
  4. QUETIAPINE. [Concomitant]
     Active Substance: QUETIAPINE
  5. FENERGAN                           /00033001/ [Concomitant]
     Active Substance: PROMETHAZINE HYDROCHLORIDE

REACTIONS (7)
  - Fall [Recovering/Resolving]
  - Asthenia [Recovering/Resolving]
  - Abnormal behaviour [Recovering/Resolving]
  - Weight decreased [Recovering/Resolving]
  - Hypersomnia [Recovering/Resolving]
  - Gastritis [Recovering/Resolving]
  - Amnesia [Recovering/Resolving]

NARRATIVE: CASE EVENT DATE: 2019
